FAERS Safety Report 20016846 (Version 1)
Quarter: 2021Q4

REPORT INFORMATION
  Report Type: Spontaneous
  Country: US (occurrence: None)
  Receive Date: 20211104
  Receipt Date: 20211104
  Transmission Date: 20220303
  Serious: Yes (Other)
  Sender: FDA-Public Use
  Company Number: None

PATIENT
  Age: 57 Year
  Sex: Male
  Weight: 89 kg

DRUGS (15)
  1. INLYTA [Suspect]
     Active Substance: AXITINIB
     Indication: Renal cancer
     Dosage: FREQUENCY : TWICE A DAY;?
     Route: 048
  2. CELEBREX [Concomitant]
     Active Substance: CELECOXIB
  3. CETIRIZINE [Concomitant]
     Active Substance: CETIRIZINE HYDROCHLORIDE
  4. DURAGESIC [Concomitant]
     Active Substance: FENTANYL
  5. FOLIC ACID [Concomitant]
     Active Substance: FOLIC ACID
  6. HUMIRA [Concomitant]
     Active Substance: ADALIMUMAB
  7. IRON [Concomitant]
     Active Substance: IRON
  8. KEYRUDA [Concomitant]
  9. MAGNESIUM [Concomitant]
     Active Substance: MAGNESIUM
  10. METHOTREXATE [Concomitant]
     Active Substance: METHOTREXATE
  11. MORPHINE SULFATE [Concomitant]
     Active Substance: MORPHINE SULFATE
  12. OTEZLA [Concomitant]
     Active Substance: APREMILAST
  13. OXYCODONE [Concomitant]
     Active Substance: OXYCODONE
  14. SELENIUM [Concomitant]
     Active Substance: SELENIUM
  15. ZOMETA [Concomitant]
     Active Substance: ZOLEDRONIC ACID

REACTIONS (1)
  - Disease progression [None]
